FAERS Safety Report 11828778 (Version 2)
Quarter: 2015Q4

REPORT INFORMATION
  Report Type: Spontaneous
  Country: US (occurrence: US)
  Receive Date: 20151211
  Receipt Date: 20151217
  Transmission Date: 20160305
  Serious: No
  Sender: FDA-Public Use
  Company Number: US-ASTRAZENECA-2015SF21636

PATIENT
  Sex: Female
  Weight: 38.6 kg

DRUGS (5)
  1. DUONEB GENERIC [Concomitant]
     Indication: CHRONIC OBSTRUCTIVE PULMONARY DISEASE
     Route: 055
     Dates: start: 2015
  2. DUONEB GENERIC [Concomitant]
     Indication: BRONCHITIS
     Route: 055
     Dates: start: 2015
  3. PULMICORT FLEXHALER [Suspect]
     Active Substance: BUDESONIDE
     Indication: BRONCHITIS
     Dosage: 180 MCG 2 PUFFS TWICE DAILY
     Route: 055
  4. PULMICORT FLEXHALER [Suspect]
     Active Substance: BUDESONIDE
     Indication: CHRONIC OBSTRUCTIVE PULMONARY DISEASE
     Dosage: 180 MCG 2 PUFFS TWICE DAILY
     Route: 055
  5. SYNTHROID [Concomitant]
     Active Substance: LEVOTHYROXINE SODIUM

REACTIONS (6)
  - Thyroid disorder [Unknown]
  - Anxiety [Unknown]
  - Intentional product misuse [Unknown]
  - Drug dose omission [Unknown]
  - Weight decreased [Unknown]
  - Product quality issue [Unknown]
